FAERS Safety Report 14078276 (Version 1)
Quarter: 2017Q4

REPORT INFORMATION
  Report Type: Spontaneous
  Country: US (occurrence: US)
  Receive Date: 20171011
  Receipt Date: 20171011
  Transmission Date: 20180321
  Serious: Yes (Life-Threatening)
  Sender: FDA-Public Use
  Company Number: None

PATIENT
  Age: 75 Year
  Sex: Male
  Weight: 121.2 kg

DRUGS (2)
  1. SITAGLIPTAN [Suspect]
     Active Substance: SITAGLIPTIN
     Indication: TYPE 2 DIABETES MELLITUS
     Route: 048
  2. APIXIBAN [Concomitant]
     Active Substance: APIXABAN

REACTIONS (5)
  - Gingival bleeding [None]
  - Pancreatitis [None]
  - Tooth loss [None]
  - Rhabdomyolysis [None]
  - Acute kidney injury [None]

NARRATIVE: CASE EVENT DATE: 20171005
